FAERS Safety Report 5168535-4 (Version None)
Quarter: 2006Q4

REPORT INFORMATION
  Report Type: 
  Country: None (occurrence: None)
  Receive Date: 20061208
  Receipt Date: 20061108
  Transmission Date: 20070319
  Serious: Yes (Hospitalization)
  Sender: FDA-Public Use
  Company Number: JP-ABBOTT-06P-087-0349944-00

PATIENT
  Age: 44 Year
  Sex: Male
  Weight: 63 kg

DRUGS (12)
  1. ERYTHROMYCIN [Suspect]
     Indication: PNEUMONIA
     Route: 048
     Dates: start: 20030620, end: 20030622
  2. ERYTHROMYCIN [Suspect]
     Dates: start: 20030704, end: 20030707
  3. PRULIFLOXACIN [Suspect]
     Indication: PYREXIA
     Route: 048
     Dates: start: 20030601, end: 20030601
  4. PRULIFLOXACIN [Suspect]
     Indication: COUGH
  5. CEFPIROME SULFATE [Suspect]
     Indication: PNEUMONIA
     Route: 042
     Dates: start: 20030616, end: 20030619
  6. MINOCYCLINE HCL [Suspect]
     Indication: PNEUMONIA
     Route: 042
     Dates: start: 20030616, end: 20030619
  7. MINOCYCLINE HCL [Suspect]
     Route: 042
     Dates: start: 20030626, end: 20030703
  8. IMIPENEN/CILASTATIN SODIUM [Suspect]
     Indication: PNEUMONIA
     Route: 042
     Dates: start: 20030623, end: 20030625
  9. PAZUFLOXACIN MESILATE [Suspect]
     Indication: PNEUMONIA
     Route: 042
     Dates: start: 20030626, end: 20030701
  10. CYPROXACIN [Suspect]
     Indication: PNEUMONIA
     Dates: start: 20030702, end: 20030703
  11. MEROPENEM TRIHYDRATE [Suspect]
     Indication: PNEUMONIA
     Route: 042
     Dates: start: 20030704, end: 20030707
  12. RIFAMPICIN [Suspect]
     Indication: PNEUMONIA
     Route: 048
     Dates: start: 20030704, end: 20030707

REACTIONS (19)
  - ANTIBODY TEST POSITIVE [None]
  - BLOOD ALKALINE PHOSPHATASE INCREASED [None]
  - BRONCHOALVEOLAR LAVAGE ABNORMAL [None]
  - CANDIDIASIS [None]
  - CHLAMYDIAL INFECTION [None]
  - DRUG HYPERSENSITIVITY [None]
  - EOSINOPHILIC PNEUMONIA [None]
  - ESCHERICHIA INFECTION [None]
  - FUNGUS CULTURE POSITIVE [None]
  - GAMMA-GLUTAMYLTRANSFERASE INCREASED [None]
  - HAEMORRHAGE [None]
  - HYPOALBUMINAEMIA [None]
  - HYPOPROTEINAEMIA [None]
  - INFLAMMATION [None]
  - LUNG CONSOLIDATION [None]
  - PNEUMONIA BACTERIAL [None]
  - RHEUMATOID FACTOR INCREASED [None]
  - STREPTOCOCCAL INFECTION [None]
  - THERAPY NON-RESPONDER [None]
